FAERS Safety Report 5156963-2 (Version None)
Quarter: 2006Q4

REPORT INFORMATION
  Report Type: 
  Country: None (occurrence: None)
  Receive Date: 20061124
  Receipt Date: 20061114
  Transmission Date: 20070319
  Serious: Yes (Other)
  Sender: FDA-Public Use
  Company Number: BR-ROCHE-471399

PATIENT
  Age: 16 Year
  Sex: Male
  Weight: 64 kg

DRUGS (1)
  1. RIVOTRIL [Suspect]
     Indication: HEADACHE
     Route: 048
     Dates: start: 20060115

REACTIONS (2)
  - BLOOD URINE PRESENT [None]
  - KIDNEY INFECTION [None]
